FAERS Safety Report 4754569-8 (Version None)
Quarter: 2005Q3

REPORT INFORMATION
  Report Type: 
  Country: None (occurrence: None)
  Receive Date: 20050829
  Receipt Date: 20050705
  Transmission Date: 20060218
  Serious: Yes (Hospitalization)
  Sender: FDA-Public Use
  Company Number: FR-BRISTOL-MYERS SQUIBB COMPANY-13048145

PATIENT
  Age: 41 Year
  Sex: Female
  Weight: 70 kg

DRUGS (4)
  1. ABILIFY [Suspect]
     Indication: SCHIZOPHRENIA
     Dosage: DOSAGE: INCREASED TO 15MG DAILY FROM 18-JUL-2005 TO ONGOING
     Route: 048
     Dates: start: 20050620
  2. LOXAPAC [Concomitant]
     Indication: SCHIZOPHRENIA
     Dates: start: 20050228, end: 20050717
  3. DEPAKENE [Concomitant]
     Indication: EPILEPSY
  4. CLONAZEPAM [Concomitant]
     Indication: EPILEPSY

REACTIONS (2)
  - ATRIAL TACHYCARDIA [None]
  - MENTAL DISORDER [None]
